FAERS Safety Report 10032316 (Version 2)
Quarter: 2014Q2

REPORT INFORMATION
  Report Type: Spontaneous
  Country: CA (occurrence: CA)
  Receive Date: 20140324
  Receipt Date: 20140624
  Transmission Date: 20141212
  Serious: Yes (Other)
  Sender: FDA-Public Use
  Company Number: CA-PFIZER INC-2014078924

PATIENT
  Sex: Male

DRUGS (1)
  1. CHAMPIX [Suspect]
     Indication: SMOKING CESSATION THERAPY
     Dosage: UNK
     Dates: start: 201103

REACTIONS (10)
  - Physical assault [Unknown]
  - Homicidal ideation [Unknown]
  - Aggression [Unknown]
  - Insomnia [Unknown]
  - Incoherent [Unknown]
  - Abnormal behaviour [Unknown]
  - Personality change [Unknown]
  - Gait disturbance [Unknown]
  - Speech disorder [Unknown]
  - Screaming [Unknown]
